FAERS Safety Report 7349651-5 (Version None)
Quarter: 2011Q1

REPORT INFORMATION
  Report Type: 
  Country: None (occurrence: None)
  Receive Date: 20110314
  Receipt Date: 20110121
  Transmission Date: 20110831
  Serious: Yes (Life-Threatening, Hospitalization)
  Sender: FDA-Public Use
  Company Number: A0908103A

PATIENT
  Sex: Female

DRUGS (1)
  1. AUGMENTIN '125' [Suspect]
     Route: 065

REACTIONS (3)
  - PSEUDOMEMBRANOUS COLITIS [None]
  - DIARRHOEA [None]
  - CLOSTRIDIAL INFECTION [None]
